FAERS Safety Report 7659413-7 (Version None)
Quarter: 2011Q3

REPORT INFORMATION
  Report Type: 
  Country: None (occurrence: None)
  Receive Date: 20110805
  Receipt Date: 20110726
  Transmission Date: 20111222
  Serious: Yes (Death, Hospitalization)
  Sender: FDA-Public Use
  Company Number: CZ-CELGENEUS-217-21880-11071307

PATIENT
  Age: 78 Year
  Sex: Female
  Weight: 55 kg

DRUGS (18)
  1. ANOPYRIN [Concomitant]
     Indication: ANTICOAGULANT THERAPY
     Dosage: 100 MILLIGRAM
     Route: 048
     Dates: start: 20110417
  2. PALLADONE SR [Concomitant]
     Dosage: 4 MILLIGRAM
     Route: 048
     Dates: start: 20101213
  3. TIMOLOL MALEATE [Concomitant]
     Indication: GLAUCOMA
     Dosage: 1 DROPS
     Route: 047
  4. VITAMIN AD [Concomitant]
     Indication: OSTEOPOROSIS
     Dosage: 1 GUTTA
     Route: 048
     Dates: start: 20051001
  5. REVLIMID [Suspect]
     Dosage: 15 MILLIGRAM
     Route: 048
     Dates: start: 20110627, end: 20110710
  6. REVLIMID [Suspect]
     Indication: MYELOMA RECURRENCE
     Dosage: 25 MILLIGRAM
     Route: 048
     Dates: start: 20110418, end: 20110508
  7. LANSOPROL [Concomitant]
     Dosage: 15 MILLIGRAM
     Route: 065
     Dates: start: 20090617
  8. MICARDIS PLUS 80 [Concomitant]
     Indication: HYPERTENSION
     Route: 048
  9. DEXAMETHASONE [Suspect]
     Dosage: 4 MILLIGRAM
     Route: 048
     Dates: start: 20110627, end: 20110710
  10. CIPROFLAXACIN [Concomitant]
     Dosage: 500 MILLIGRAM
     Route: 048
     Dates: start: 20110417
  11. DEXAMETHASONE [Suspect]
     Indication: MYELOMA RECURRENCE
     Dosage: 40 MILLIGRAM
     Route: 048
     Dates: start: 20110418, end: 20110606
  12. AUGMENTIN '125' [Concomitant]
     Dosage: 1875 MILLIGRAM
     Route: 048
     Dates: start: 20110530, end: 20110612
  13. XALATAN [Concomitant]
     Indication: GLAUCOMA
     Dosage: 1 DROPS
     Route: 047
  14. NUTRIDRINK [Concomitant]
     Route: 048
     Dates: start: 20110613
  15. IBANDRONATE SODIUM [Concomitant]
     Dosage: 50 MILLIGRAM
     Dates: start: 20091001
  16. HERPESIN [Concomitant]
     Indication: ANTIVIRAL PROPHYLAXIS
     Dosage: 400 MILLIGRAM
     Route: 065
     Dates: start: 20110417
  17. CEFUROXIME [Concomitant]
     Indication: INFECTION
     Dosage: 1000 MILLIGRAM
     Route: 048
     Dates: start: 20110623, end: 20110627
  18. CALCIUM ACETATE [Concomitant]
     Indication: OSTEOPOROSIS
     Dosage: 1000 MILLIGRAM
     Route: 048
     Dates: start: 20051001

REACTIONS (1)
  - INFECTION [None]
